FAERS Safety Report 18916887 (Version 10)
Quarter: 2025Q2

REPORT INFORMATION
  Report Type: Report from Study
  Country: US (occurrence: US)
  Receive Date: 20210219
  Receipt Date: 20250526
  Transmission Date: 20250717
  Serious: Yes (Other)
  Sender: TAKEDA
  Company Number: US-SHIRE-US202031744

PATIENT
  Age: 14 Year
  Sex: Female
  Weight: 61 kg

DRUGS (36)
  1. LANADELUMAB [Suspect]
     Active Substance: LANADELUMAB
     Indication: Immune system disorder
     Dosage: 300 MILLIGRAM, Q2WEEKS
     Dates: start: 20200615
  2. LANADELUMAB [Suspect]
     Active Substance: LANADELUMAB
     Dosage: 300 MILLIGRAM, Q2WEEKS
     Dates: start: 20200808
  3. LANADELUMAB [Suspect]
     Active Substance: LANADELUMAB
     Dosage: 300 MILLIGRAM, Q4WEEKS
  4. FIRAZYR [Suspect]
     Active Substance: ICATIBANT ACETATE
     Indication: Hereditary angioedema
  5. FIRAZYR [Suspect]
     Active Substance: ICATIBANT ACETATE
  6. FAMOTIDINE [Concomitant]
     Active Substance: FAMOTIDINE
     Indication: Product used for unknown indication
  7. DOCUSATE SODIUM [Concomitant]
     Active Substance: DOCUSATE SODIUM
     Indication: Product used for unknown indication
  8. CLONIDINE HYDROCHLORIDE [Concomitant]
     Active Substance: CLONIDINE HYDROCHLORIDE
  9. LACTULOSE [Concomitant]
     Active Substance: LACTULOSE
     Indication: Product used for unknown indication
  10. EPINEPHRINE [Concomitant]
     Active Substance: EPINEPHRINE
     Indication: Product used for unknown indication
  11. MONTELUKAST SODIUM [Concomitant]
     Active Substance: MONTELUKAST SODIUM
     Indication: Product used for unknown indication
  12. SERTRALINE [Concomitant]
     Active Substance: SERTRALINE HYDROCHLORIDE
     Indication: Product used for unknown indication
  13. CETIRIZINE HCL [Concomitant]
     Active Substance: CETIRIZINE HYDROCHLORIDE
     Indication: Product used for unknown indication
  14. VITAMIN D3 [Concomitant]
     Active Substance: CHOLECALCIFEROL
     Indication: Product used for unknown indication
  15. AMITIZA [Concomitant]
     Active Substance: LUBIPROSTONE
     Indication: Product used for unknown indication
  16. SENNA [Concomitant]
     Active Substance: SENNOSIDES
  17. TYLENOL [Concomitant]
     Active Substance: ACETAMINOPHEN
  18. RISPERIDONE [Concomitant]
     Active Substance: RISPERIDONE
  19. DIPHENHYDRAMINE HYDROCHLORIDE [Concomitant]
     Active Substance: DIPHENHYDRAMINE HYDROCHLORIDE
  20. OXCARBAZEPINE [Concomitant]
     Active Substance: OXCARBAZEPINE
  21. SERTRALINE HYDROCHLORIDE [Concomitant]
     Active Substance: SERTRALINE HYDROCHLORIDE
  22. LACTOBACILLUS ACIDOPHILUS [Concomitant]
     Active Substance: LACTOBACILLUS ACIDOPHILUS
  23. ZYRTEC [Concomitant]
     Active Substance: CETIRIZINE HYDROCHLORIDE
  24. NAYZILAM [Concomitant]
     Active Substance: MIDAZOLAM
  25. RETIN-A [Concomitant]
     Active Substance: TRETINOIN
  26. PRAZOSIN HYDROCHLORIDE [Concomitant]
     Active Substance: PRAZOSIN HYDROCHLORIDE
  27. BENADRYL ALLERGY [Concomitant]
     Active Substance: DIPHENHYDRAMINE HYDROCHLORIDE
  28. BISACODYL [Concomitant]
     Active Substance: BISACODYL
  29. ALBUTEROL SULFATE [Concomitant]
     Active Substance: ALBUTEROL SULFATE
  30. MELATONIN [Concomitant]
     Active Substance: MELATONIN
  31. LINZESS [Concomitant]
     Active Substance: LINACLOTIDE
  32. VITAMIN D [Concomitant]
     Active Substance: VITAMIN D NOS
  33. WELLBUTRIN XL [Concomitant]
     Active Substance: BUPROPION HYDROCHLORIDE
  34. CLEOCIN T [Concomitant]
     Active Substance: CLINDAMYCIN PHOSPHATE
  35. ZOLOFT [Concomitant]
     Active Substance: SERTRALINE HYDROCHLORIDE
  36. AZELAIC ACID [Concomitant]
     Active Substance: AZELAIC ACID

REACTIONS (11)
  - Gastrointestinal bacterial infection [Unknown]
  - Infusion site haemorrhage [Recovered/Resolved]
  - Injection site pain [Recovered/Resolved]
  - Vomiting [Unknown]
  - Product use issue [Unknown]
  - Insurance issue [Unknown]
  - Product prescribing issue [Unknown]
  - Gastrointestinal disorder [Unknown]
  - Constipation [Unknown]
  - Urinary tract infection [Unknown]
  - Hereditary angioedema [Unknown]

NARRATIVE: CASE EVENT DATE: 20210326
